FAERS Safety Report 7951740-9 (Version None)
Quarter: 2011Q4

REPORT INFORMATION
  Report Type: 
  Country: None (occurrence: None)
  Receive Date: 20111130
  Receipt Date: 20111130
  Transmission Date: 20120403
  Serious: No
  Sender: FDA-Public Use
  Company Number: None

PATIENT
  Age: 62 Year
  Sex: Female
  Weight: 74.5 kg

DRUGS (4)
  1. ASPIRIN [Concomitant]
  2. FERROUS SULFATE TAB [Concomitant]
  3. FERAHEME [Suspect]
     Indication: ANAEMIA
     Dosage: 510 MG/17 ML ONCE INTRAVENOUS
     Route: 042
     Dates: start: 20111122
  4. HYDROCHLOROTHIAZIDE [Concomitant]

REACTIONS (5)
  - OXYGEN SATURATION DECREASED [None]
  - CHEST DISCOMFORT [None]
  - HEART RATE INCREASED [None]
  - DYSPNOEA [None]
  - NAUSEA [None]
